FAERS Safety Report 8406549-9 (Version None)
Quarter: 2012Q2

REPORT INFORMATION
  Report Type: 
  Country: None (occurrence: None)
  Receive Date: 20120604
  Receipt Date: 20120530
  Transmission Date: 20120825
  Serious: Yes (Other)
  Sender: FDA-Public Use
  Company Number: NL-BAYER-2012-045994

PATIENT
  Age: 50 Year
  Sex: Male

DRUGS (1)
  1. BETASERON [Suspect]
     Indication: MULTIPLE SCLEROSIS
     Dosage: UNK
     Route: 058
     Dates: start: 20060501

REACTIONS (9)
  - PYREXIA [None]
  - PANNICULITIS LOBULAR [None]
  - INJECTION SITE WARMTH [None]
  - INJECTION SITE DISCOLOURATION [None]
  - INJECTION SITE SCAR [None]
  - INJECTION SITE PAIN [None]
  - INJECTION SITE RASH [None]
  - SKIN EXFOLIATION [None]
  - INJECTION SITE REACTION [None]
